FAERS Safety Report 7921543-X (Version None)
Quarter: 2011Q4

REPORT INFORMATION
  Report Type: 
  Country: None (occurrence: None)
  Receive Date: 20111117
  Receipt Date: 20111111
  Transmission Date: 20120403
  Serious: Yes (Death)
  Sender: FDA-Public Use
  Company Number: DE-CELGENEUS-062-21880-11110569

PATIENT
  Age: 22 Year
  Sex: Male

DRUGS (4)
  1. AMPHOTERICIN B [Concomitant]
     Indication: PNEUMONIA FUNGAL
     Route: 065
     Dates: start: 20110801
  2. REVLIMID [Suspect]
     Dosage: 5 MILLIGRAM
     Route: 048
     Dates: start: 20111004, end: 20111010
  3. VORICONAZOLE [Concomitant]
     Indication: PNEUMONIA FUNGAL
     Route: 065
     Dates: start: 20110101
  4. GANCICLOVIR [Concomitant]
     Route: 065
     Dates: start: 20110801

REACTIONS (1)
  - HODGKIN'S DISEASE [None]
